FAERS Safety Report 25520929 (Version 1)
Quarter: 2025Q3

REPORT INFORMATION
  Report Type: Spontaneous
  Country: JP (occurrence: JP)
  Receive Date: 20250705
  Receipt Date: 20250705
  Transmission Date: 20251020
  Serious: Yes (Other)
  Sender: VKT PHARMA PRIVATE LIMITED
  Company Number: JP-VKT-000685

PATIENT
  Age: 25 Year
  Sex: Male

DRUGS (3)
  1. VALPROIC ACID [Concomitant]
     Active Substance: VALPROIC ACID
     Indication: Occipital lobe epilepsy
     Route: 065
  2. CARBAMAZEPINE [Concomitant]
     Active Substance: CARBAMAZEPINE
     Indication: Occipital lobe epilepsy
     Route: 065
  3. LEVETIRACETAM [Suspect]
     Active Substance: LEVETIRACETAM
     Indication: Occipital lobe epilepsy
     Dosage: 2500 MG PER DAY
     Route: 065

REACTIONS (3)
  - Paradoxical drug reaction [Recovered/Resolved]
  - Focal dyscognitive seizures [Recovered/Resolved]
  - Partial seizures with secondary generalisation [Recovered/Resolved]
